FAERS Safety Report 13649591 (Version 2)
Quarter: 2017Q3

REPORT INFORMATION
  Report Type: Spontaneous
  Country: CL (occurrence: CL)
  Receive Date: 20170614
  Receipt Date: 20170804
  Transmission Date: 20171127
  Serious: Yes (Life-Threatening, Hospitalization, Other)
  Sender: FDA-Public Use
  Company Number: CL-MACLEODS PHARMACEUTICALS US LTD-MAC2017005168

PATIENT

DRUGS (5)
  1. RISPERIDONE. [Suspect]
     Active Substance: RISPERIDONE
     Indication: MAJOR DEPRESSION
     Dosage: 3 MG, QD
     Route: 065
  2. QUETIAPINE. [Suspect]
     Active Substance: QUETIAPINE
     Indication: MAJOR DEPRESSION
     Dosage: 200 MG, UNK
     Route: 065
  3. MIRTAZAPINE. [Suspect]
     Active Substance: MIRTAZAPINE
     Indication: MAJOR DEPRESSION
     Dosage: 30 MG, UNK
     Route: 065
  4. RISPERIDONE. [Suspect]
     Active Substance: RISPERIDONE
     Dosage: UNK, REDUCED DOSE
     Route: 065
  5. VENLAFAXINE [Suspect]
     Active Substance: VENLAFAXINE HYDROCHLORIDE
     Indication: MAJOR DEPRESSION
     Dosage: 225 MG, UNK
     Route: 065

REACTIONS (13)
  - Mutism [Recovered/Resolved]
  - Vomiting [Recovered/Resolved]
  - Status epilepticus [Recovered/Resolved]
  - Muscle rigidity [Recovered/Resolved]
  - Respiratory failure [Recovered/Resolved]
  - Condition aggravated [Recovered/Resolved]
  - Decreased appetite [Recovered/Resolved]
  - Catatonia [Recovered/Resolved]
  - Hallucination, visual [Recovered/Resolved]
  - Hypokinesia [Recovered/Resolved]
  - Stupor [Recovered/Resolved]
  - Aspiration bronchial [Recovered/Resolved]
  - Abnormal behaviour [Recovered/Resolved]
